FAERS Safety Report 13664294 (Version 2)
Quarter: 2017Q3

REPORT INFORMATION
  Report Type: Report from Study
  Country: JP (occurrence: JP)
  Receive Date: 20170619
  Receipt Date: 20170802
  Transmission Date: 20171127
  Serious: No
  Sender: FDA-Public Use
  Company Number: JP-EISAI MEDICAL RESEARCH-EC-2017-028564

PATIENT
  Age: 70 Year
  Sex: Female
  Weight: 49 kg

DRUGS (10)
  1. LENVIMA [Suspect]
     Active Substance: LENVATINIB
     Indication: PAPILLARY THYROID CANCER
     Route: 048
     Dates: start: 20150902, end: 20150927
  2. NORVASC [Concomitant]
     Active Substance: AMLODIPINE BESYLATE
  3. LENVIMA [Suspect]
     Active Substance: LENVATINIB
     Route: 048
     Dates: start: 20151006, end: 20151110
  4. LENVIMA [Suspect]
     Active Substance: LENVATINIB
     Route: 048
     Dates: start: 20151121, end: 20151224
  5. UREPEARL [Concomitant]
     Active Substance: UREA
  6. DERMOVATE [Concomitant]
     Active Substance: CLOBETASOL
  7. AZILVA [Concomitant]
     Active Substance: AZILSARTAN KAMEDOXOMIL
  8. LENVIMA [Suspect]
     Active Substance: LENVATINIB
     Route: 048
     Dates: start: 20160108, end: 20160225
  9. ADALAT [Concomitant]
     Active Substance: NIFEDIPINE
  10. LEVOTHYROXINE. [Concomitant]
     Active Substance: LEVOTHYROXINE

REACTIONS (1)
  - Diarrhoea [Recovering/Resolving]

NARRATIVE: CASE EVENT DATE: 20160225
